FAERS Safety Report 25623370 (Version 2)
Quarter: 2025Q3

REPORT INFORMATION
  Report Type: Report from Study
  Country: US (occurrence: US)
  Receive Date: 20250730
  Receipt Date: 20250804
  Transmission Date: 20251021
  Serious: Yes (Hospitalization, Other)
  Sender: ABBVIE
  Company Number: US-ABBVIE-6391300

PATIENT
  Sex: Male

DRUGS (1)
  1. RINVOQ [Suspect]
     Active Substance: UPADACITINIB
     Indication: Dermatitis atopic
     Route: 048
     Dates: start: 20230701

REACTIONS (14)
  - Seizure [Unknown]
  - Tremor [Unknown]
  - Atrial fibrillation [Unknown]
  - Dermatitis atopic [Unknown]
  - Rosacea [Unknown]
  - Eyelid thickening [Recovered/Resolved]
  - Fall [Unknown]
  - Staring [Unknown]
  - Dizziness [Unknown]
  - Logorrhoea [Unknown]
  - Head injury [Unknown]
  - Aphasia [Unknown]
  - Ocular hyperaemia [Unknown]
  - Loss of consciousness [Unknown]
